FAERS Safety Report 5595034-8 (Version None)
Quarter: 2008Q1

REPORT INFORMATION
  Report Type: 
  Country: None (occurrence: None)
  Receive Date: 20080117
  Receipt Date: 20080103
  Transmission Date: 20080703
  Serious: Yes (Other)
  Sender: FDA-Public Use
  Company Number: CH-ASTRAZENECA-2008PK00088

PATIENT
  Age: 64 Year
  Sex: Female

DRUGS (10)
  1. NEXIUM [Suspect]
     Route: 048
     Dates: end: 20071024
  2. PARACETAMOL [Suspect]
     Dates: start: 20070927
  3. MITOMYCIN [Suspect]
     Route: 033
     Dates: start: 20070901, end: 20070901
  4. TENORMIN [Concomitant]
     Route: 048
  5. TIENAM [Concomitant]
     Route: 042
     Dates: start: 20071007, end: 20071016
  6. DROPERIDOL [Concomitant]
     Route: 048
     Dates: start: 20070930, end: 20071009
  7. PASPERTIN [Concomitant]
     Dates: start: 20071003
  8. CLEXANE [Concomitant]
     Dosage: 100MG/ML
     Route: 058
  9. LEXOTANIL [Concomitant]
     Route: 048
  10. ELTROXIN [Concomitant]
     Route: 048

REACTIONS (3)
  - CHOLESTASIS [None]
  - JAUNDICE CHOLESTATIC [None]
  - PANCREATIC ENZYMES INCREASED [None]
